FAERS Safety Report 18533694 (Version 1)
Quarter: 2020Q4

REPORT INFORMATION
  Report Type: Spontaneous
  Country: US (occurrence: US)
  Receive Date: 20201119
  Receipt Date: 20201119
  Transmission Date: 20210114
  Serious: Yes (Life-Threatening, Other)
  Sender: FDA-Public Use
  Company Number: None

PATIENT
  Age: 51 Year
  Sex: Male
  Weight: 81.65 kg

DRUGS (1)
  1. COLCHICINE. [Suspect]
     Active Substance: COLCHICINE
     Indication: COVID-19
     Dates: start: 20200630, end: 20200925

REACTIONS (3)
  - Heart rate irregular [None]
  - Dyspnoea [None]
  - Chest discomfort [None]
